FAERS Safety Report 4382565-1 (Version None)
Quarter: 2004Q2

REPORT INFORMATION
  Report Type: 
  Country: None (occurrence: None)
  Receive Date: 20040622
  Receipt Date: 20040608
  Transmission Date: 20050107
  Serious: Yes (Disabling)
  Sender: FDA-Public Use
  Company Number: US-MERCK-0406USA00857

PATIENT
  Age: 60 Year
  Sex: Female

DRUGS (12)
  1. [THERAPY UNSPECIFIED] [Concomitant]
     Route: 065
     Dates: start: 20030101
  2. [THERAPY UNSPECIFIED] [Concomitant]
     Route: 065
  3. ZOVIRAX [Concomitant]
     Route: 065
  4. ACLOVATE [Concomitant]
     Route: 065
  5. FOSAMAX [Suspect]
     Indication: OSTEOPOROSIS PROPHYLAXIS
     Route: 048
     Dates: start: 20040322, end: 20040405
  6. CLARINEX [Concomitant]
     Route: 065
  7. FLUOCINOLONE ACETONIDE [Concomitant]
     Route: 065
  8. ELOCON [Concomitant]
     Route: 065
  9. DERMATOP [Concomitant]
     Route: 065
  10. PREDNISONE [Concomitant]
     Route: 065
  11. ACTONEL [Concomitant]
     Route: 065
  12. PROTOPIC [Concomitant]
     Route: 065

REACTIONS (1)
  - VOMITING [None]
